FAERS Safety Report 17435417 (Version 1)
Quarter: 2020Q1

REPORT INFORMATION
  Report Type: Spontaneous
  Country: IT (occurrence: IT)
  Receive Date: 20200219
  Receipt Date: 20200219
  Transmission Date: 20200409
  Serious: Yes (Hospitalization)
  Sender: FDA-Public Use
  Company Number: NVSC2020IT039536

PATIENT
  Age: 20 Year
  Sex: Male

DRUGS (2)
  1. TRILAFON [Suspect]
     Active Substance: PERPHENAZINE
     Indication: DRUG ABUSE
     Dosage: 20 MG
     Route: 048
     Dates: start: 20191023, end: 20191023
  2. FLUOXETINE [Suspect]
     Active Substance: FLUOXETINE HYDROCHLORIDE
     Indication: DRUG ABUSE
     Dosage: 340 MG
     Route: 048
     Dates: start: 20191023, end: 20191023

REACTIONS (5)
  - Akathisia [Recovered/Resolved]
  - Serotonin syndrome [Recovered/Resolved]
  - Psychomotor hyperactivity [Recovered/Resolved]
  - Pyrexia [Recovered/Resolved]
  - Drug abuse [Recovered/Resolved]

NARRATIVE: CASE EVENT DATE: 20191023
